FAERS Safety Report 7376785-1 (Version None)
Quarter: 2011Q1

REPORT INFORMATION
  Report Type: 
  Country: None (occurrence: None)
  Receive Date: 20110325
  Receipt Date: 20110316
  Transmission Date: 20110831
  Serious: Yes (Hospitalization)
  Sender: FDA-Public Use
  Company Number: US-ASTRAZENECA-2011SE15304

PATIENT
  Age: 58 Year
  Sex: Female

DRUGS (1)
  1. TOPROL-XL [Suspect]
     Route: 048

REACTIONS (8)
  - INTERVERTEBRAL DISC PROTRUSION [None]
  - CYST [None]
  - FIBROMYALGIA [None]
  - DRUG INEFFECTIVE [None]
  - MENISCUS LESION [None]
  - PAIN [None]
  - MENTAL DISORDER [None]
  - NERVE INJURY [None]
